FAERS Safety Report 23352396 (Version 1)
Quarter: 2023Q4

REPORT INFORMATION
  Report Type: Spontaneous
  Country: JP (occurrence: JP)
  Receive Date: 20231229
  Receipt Date: 20231229
  Transmission Date: 20240110
  Serious: No
  Sender: FDA-Public Use
  Company Number: None

PATIENT
  Age: 63 Year
  Sex: Female

DRUGS (10)
  1. LUNESTA [Suspect]
     Active Substance: ESZOPICLONE
     Indication: Insomnia
     Dosage: 2 MG
     Route: 065
  2. DAYVIGO [Suspect]
     Active Substance: LEMBOREXANT
     Indication: Insomnia
     Route: 048
     Dates: start: 20231116, end: 20231117
  3. MONTELUKAST [Concomitant]
     Active Substance: MONTELUKAST SODIUM
     Route: 065
  4. RUPAFIN [Concomitant]
     Active Substance: RUPATADINE FUMARATE
     Route: 065
  5. Tsumura Shakuyakukanzoto Extract [Concomitant]
     Route: 065
  6. SERTRALINE [Concomitant]
     Active Substance: SERTRALINE HYDROCHLORIDE
     Route: 065
  7. HEPARINOID [Concomitant]
     Route: 065
  8. EPINASTINE HYDROCHLORIDE [Concomitant]
     Active Substance: EPINASTINE HYDROCHLORIDE
     Route: 065
  9. ESTRADIOL [Concomitant]
     Active Substance: ESTRADIOL
     Route: 065
  10. DUPHASTON [Concomitant]
     Active Substance: DYDROGESTERONE
     Route: 065

REACTIONS (5)
  - Hallucination, auditory [Recovered/Resolved]
  - Feeling cold [Recovered/Resolved]
  - Sleep paralysis [Recovered/Resolved]
  - Middle insomnia [Recovered/Resolved]
  - Drug ineffective [Unknown]

NARRATIVE: CASE EVENT DATE: 20231116
